FAERS Safety Report 7937566 (Version 4)
Quarter: 2014Q1

REPORT INFORMATION
  Report Type: Spontaneous
  Country: US (occurrence: US)
  Receive Date: 20110510
  Receipt Date: 20140131
  Transmission Date: 20141002
  Serious: Yes (Hospitalization)
  Sender: FDA-Public Use
  Company Number: US-BIOGENIDEC-2011BI016424

PATIENT
  Age: 54 Year
  Sex: Female

DRUGS (2)
  1. TYSABRI [Suspect]
     Indication: MULTIPLE SCLEROSIS
     Route: 042
     Dates: start: 20070608, end: 20110125
  2. CELEXA [Concomitant]

REACTIONS (14)
  - Hepatic failure [Recovered/Resolved]
  - Back pain [Recovered/Resolved]
  - Pain in extremity [Recovered/Resolved]
  - Depression [Recovered/Resolved]
  - Weight decreased [Recovered/Resolved]
  - Multiple sclerosis relapse [Recovered/Resolved]
  - Fatigue [Recovered/Resolved]
  - Vomiting [Recovered/Resolved]
  - Blood pressure increased [Recovered/Resolved]
  - Balance disorder [Recovered/Resolved]
  - Burning sensation [Recovered/Resolved]
  - Mental impairment [Recovered/Resolved]
  - Speech disorder [Not Recovered/Not Resolved]
  - Nausea [Recovered/Resolved]
